FAERS Safety Report 21194968 (Version 2)
Quarter: 2022Q3

REPORT INFORMATION
  Report Type: Spontaneous
  Country: BR (occurrence: BR)
  Receive Date: 20220810
  Receipt Date: 20220916
  Transmission Date: 20221027
  Serious: Yes (Other)
  Sender: FDA-Public Use
  Company Number: BR-PFIZER INC-202201041386

PATIENT
  Sex: Male

DRUGS (1)
  1. ALPRAZOLAM [Suspect]
     Active Substance: ALPRAZOLAM
     Dosage: 0.50 MG
     Route: 048

REACTIONS (10)
  - Surgery [Unknown]
  - Neoplasm malignant [Unknown]
  - Product use issue [Unknown]
  - Intentional product misuse [Unknown]
  - Dysphagia [Unknown]
  - Agitation [Unknown]
  - Therapeutic product effect incomplete [Unknown]
  - Product preparation issue [Unknown]
  - Product physical issue [Unknown]
  - Product label issue [Unknown]
